FAERS Safety Report 5502184-0 (Version None)
Quarter: 2007Q4

REPORT INFORMATION
  Report Type: 
  Country: None (occurrence: None)
  Receive Date: 20071019
  Receipt Date: 20070131
  Transmission Date: 20080405
  Serious: Yes (Hospitalization)
  Sender: FDA-Public Use
  Company Number: PHEH2007US01503

PATIENT
  Sex: Female

DRUGS (2)
  1. ZOMETA [Suspect]
     Indication: BREAST CANCER METASTATIC
     Dosage: 4MG Q4WK, INTRAVENOUS
     Route: 042
     Dates: start: 20061213
  2. AREDIA [Concomitant]

REACTIONS (2)
  - DYSPNOEA [None]
  - PYREXIA [None]
